FAERS Safety Report 6630759-4 (Version None)
Quarter: 2010Q1

REPORT INFORMATION
  Report Type: 
  Country: None (occurrence: None)
  Receive Date: 20100310
  Receipt Date: 20100310
  Transmission Date: 20100710
  Serious: No
  Sender: FDA-Public Use
  Company Number: None

PATIENT
  Age: 65 Year
  Sex: Male
  Weight: 79.8 kg

DRUGS (1)
  1. TRAZODONE HCL [Suspect]
     Indication: SOMNOLENCE
     Dosage: 150 MG HS PO
     Route: 048
     Dates: start: 20091030, end: 20100118

REACTIONS (1)
  - PRIAPISM [None]
